FAERS Safety Report 15788522 (Version 1)
Quarter: 2018Q4

REPORT INFORMATION
  Report Type: Spontaneous
  Country: US (occurrence: US)
  Receive Date: 20181231
  Receipt Date: 20181231
  Transmission Date: 20190205
  Serious: Yes (Hospitalization)
  Sender: FDA-Public Use
  Company Number: None

PATIENT

DRUGS (2)
  1. HEPARIN 1,000 UNITS/ML [Suspect]
     Active Substance: HEPARIN SODIUM
  2. HEPARIN 10,000 UNITS/ML APP PHARMACEUTICALS [Suspect]
     Active Substance: HEPARIN SODIUM

REACTIONS (2)
  - Product selection error [None]
  - Intercepted product dispensing error [None]
